FAERS Safety Report 15192330 (Version 3)
Quarter: 2018Q3

REPORT INFORMATION
  Report Type: Spontaneous
  Country: BR (occurrence: BR)
  Receive Date: 20180724
  Receipt Date: 20180925
  Transmission Date: 20181010
  Serious: No
  Sender: FDA-Public Use
  Company Number: BR-ELI_LILLY_AND_COMPANY-BR201709007296

PATIENT
  Age: 58 Year
  Sex: Female

DRUGS (3)
  1. FORTEO [Suspect]
     Active Substance: TERIPARATIDE
     Indication: OSTEOPOROSIS
     Dosage: UNK, EACH MORNING
     Route: 065
     Dates: start: 20170913, end: 20170913
  2. FORTEO [Suspect]
     Active Substance: TERIPARATIDE
     Dosage: UNK, EACH MORNING
     Route: 065
     Dates: start: 20170919
  3. FORTEO [Suspect]
     Active Substance: TERIPARATIDE
     Dosage: UNK, EACH MORNING
     Route: 065
     Dates: start: 20170901

REACTIONS (16)
  - Peripheral coldness [Recovered/Resolved]
  - Pain [Unknown]
  - Pain in extremity [Not Recovered/Not Resolved]
  - Arthralgia [Recovered/Resolved]
  - Asthenia [Unknown]
  - Nausea [Unknown]
  - Osteoarthritis [Unknown]
  - Spinal pain [Not Recovered/Not Resolved]
  - Nervousness [Recovered/Resolved]
  - Heart rate increased [Recovered/Resolved]
  - Myalgia [Not Recovered/Not Resolved]
  - Irritable bowel syndrome [Not Recovered/Not Resolved]
  - Chills [Recovered/Resolved]
  - Muscle spasms [Recovered/Resolved]
  - Neck pain [Recovered/Resolved]
  - Arthralgia [Unknown]

NARRATIVE: CASE EVENT DATE: 20170913
